FAERS Safety Report 9283213 (Version 3)
Quarter: 2013Q3

REPORT INFORMATION
  Report Type: Report from Study
  Country: JP (occurrence: JP)
  Receive Date: 20130510
  Receipt Date: 20130719
  Transmission Date: 20140515
  Serious: Yes (Other)
  Sender: FDA-Public Use
  Company Number: JP-ELI_LILLY_AND_COMPANY-JP201303006991

PATIENT
  Age: 84 Year
  Sex: Male

DRUGS (2)
  1. TERIPARATIDE [Suspect]
     Route: 058
  2. TERIPARATIDE [Suspect]
     Dosage: UNK
     Route: 058
     Dates: end: 201306

REACTIONS (5)
  - Limb injury [Unknown]
  - Traumatic haemorrhage [Unknown]
  - Vertigo [Recovering/Resolving]
  - Palpitations [Not Recovered/Not Resolved]
  - Nausea [Not Recovered/Not Resolved]
